FAERS Safety Report 17033967 (Version 3)
Quarter: 2020Q1

REPORT INFORMATION
  Report Type: Report from Study
  Country: US (occurrence: US)
  Receive Date: 20191114
  Receipt Date: 20200310
  Transmission Date: 20200409
  Serious: Yes (Hospitalization, Other)
  Sender: FDA-Public Use
  Company Number: US-ACTELION-A-US2018-168149

PATIENT
  Sex: Male

DRUGS (23)
  1. FLONASE [Concomitant]
     Active Substance: FLUTICASONE PROPIONATE
  2. MONTELUKAST [Concomitant]
     Active Substance: MONTELUKAST SODIUM
  3. CEPHALEXIN. [Concomitant]
     Active Substance: CEPHALEXIN
  4. ACETAMINOPHEN. [Concomitant]
     Active Substance: ACETAMINOPHEN
  5. COUMADIN [Concomitant]
     Active Substance: WARFARIN SODIUM
  6. LYRICA [Concomitant]
     Active Substance: PREGABALIN
  7. HYDROCODONE [Concomitant]
     Active Substance: HYDROCODONE
  8. POTASSIUM CHLORIDE. [Concomitant]
     Active Substance: POTASSIUM CHLORIDE
  9. TRACLEER [Suspect]
     Active Substance: BOSENTAN
     Dosage: UNK
     Route: 048
  10. GABAPENTIN. [Concomitant]
     Active Substance: GABAPENTIN
  11. TRACLEER [Suspect]
     Active Substance: BOSENTAN
     Indication: PULMONARY ARTERIAL HYPERTENSION
     Dosage: 125 MG, BID
     Route: 048
  12. CARDIZEM [Concomitant]
     Active Substance: DILTIAZEM HYDROCHLORIDE
  13. LISINOPRIL. [Concomitant]
     Active Substance: LISINOPRIL
  14. VENLAFAXINE [Concomitant]
     Active Substance: VENLAFAXINE HYDROCHLORIDE
  15. ATORVASTATIN ARROW [Concomitant]
     Active Substance: ATORVASTATIN CALCIUM
  16. FUROSEMIDE. [Concomitant]
     Active Substance: FUROSEMIDE
  17. HYDROCODONE BITARTRATE. [Concomitant]
     Active Substance: HYDROCODONE BITARTRATE
  18. METOPROLOL. [Concomitant]
     Active Substance: METOPROLOL
  19. CYCLOBENZAPRINE. [Concomitant]
     Active Substance: CYCLOBENZAPRINE
  20. TAMSULOSIN [Concomitant]
     Active Substance: TAMSULOSIN
  21. PENICILLIN [Concomitant]
     Active Substance: PENICILLIN
  22. AMOXICILLIN. [Concomitant]
     Active Substance: AMOXICILLIN
  23. ATORVASTATIN [Concomitant]
     Active Substance: ATORVASTATIN

REACTIONS (12)
  - Cardiac ablation [Unknown]
  - Arteriosclerosis [Unknown]
  - Red blood cell count decreased [Unknown]
  - Hypoacusis [Unknown]
  - Atrial fibrillation [Unknown]
  - Fluid retention [Unknown]
  - Cardiac flutter [Unknown]
  - Intentional underdose [Unknown]
  - Dyspnoea [Unknown]
  - Cardiac failure [Unknown]
  - Pneumonia [Recovered/Resolved]
  - Weight increased [Unknown]
